FAERS Safety Report 26062698 (Version 1)
Quarter: 2025Q4

REPORT INFORMATION
  Report Type: Spontaneous
  Country: US (occurrence: US)
  Receive Date: 20251119
  Receipt Date: 20251119
  Transmission Date: 20260118
  Serious: Yes (Other)
  Sender: AMGEN
  Company Number: US-AMGEN-USASP2025224641

PATIENT
  Age: 76 Year
  Sex: Male

DRUGS (6)
  1. PEGFILGRASTIM [Suspect]
     Active Substance: PEGFILGRASTIM
     Indication: Prophylaxis
     Dosage: UNK
     Route: 065
  2. RITUXIMAB [Concomitant]
     Active Substance: RITUXIMAB
     Indication: Diffuse large B-cell lymphoma
     Dosage: UNK
     Route: 065
  3. METHOTREXATE [Concomitant]
     Active Substance: METHOTREXATE
     Indication: Diffuse large B-cell lymphoma
     Dosage: UNK
     Route: 065
  4. TEMOZOLOMIDE [Concomitant]
     Active Substance: TEMOZOLOMIDE
     Indication: Diffuse large B-cell lymphoma
     Dosage: UNK, 6 CYCLES
     Route: 065
  5. PEMETREXED [Concomitant]
     Active Substance: PEMETREXED
     Indication: B-cell lymphoma refractory
     Dosage: 900 MILLIGRAM/SQ. METER, Q3WK, 6 CYCLES
     Route: 040
  6. ZANUBRUTINIB [Concomitant]
     Active Substance: ZANUBRUTINIB
     Indication: B-cell lymphoma refractory
     Dosage: 320 MILLIGRAM, QD ON DAY 3 TO 19, 6 CYCLES
     Route: 048

REACTIONS (3)
  - Disease progression [Recovered/Resolved]
  - Diarrhoea [Unknown]
  - Liver function test increased [Unknown]
